FAERS Safety Report 24031451 (Version 1)
Quarter: 2024Q2

REPORT INFORMATION
  Report Type: Spontaneous
  Country: US (occurrence: US)
  Receive Date: 20240629
  Receipt Date: 20240629
  Transmission Date: 20240715
  Serious: Yes (Life-Threatening, Hospitalization, Other)
  Sender: FDA-Public Use
  Company Number: US-GLAXOSMITHKLINE-US2024GSK074993

PATIENT

DRUGS (5)
  1. BUPROPION HYDROCHLORIDE XL [Suspect]
     Active Substance: BUPROPION HYDROCHLORIDE
     Indication: Product used for unknown indication
     Dosage: 90-DAY-SUPPLY OF BUPROPION EXTENDED-RELEASE (XL)
  2. OLANZAPINE [Suspect]
     Active Substance: OLANZAPINE
     Indication: Product used for unknown indication
     Dosage: UNK
  3. OXCARBAZEPINE [Suspect]
     Active Substance: OXCARBAZEPINE
     Indication: Product used for unknown indication
     Dosage: UNK
  4. AMPHETAMINE [Suspect]
     Active Substance: AMPHETAMINE
     Indication: Product used for unknown indication
     Dosage: UNK
  5. PHENCYCLIDINE [Suspect]
     Active Substance: PHENCYCLIDINE
     Indication: Product used for unknown indication
     Dosage: UNK

REACTIONS (15)
  - Overdose [Unknown]
  - Unresponsive to stimuli [Recovered/Resolved]
  - Cardiac arrest [Recovered/Resolved]
  - Ventricular fibrillation [Recovered/Resolved]
  - Torsade de pointes [Recovered/Resolved]
  - Seizure [Unknown]
  - Suicide attempt [Unknown]
  - Nervous system disorder [Unknown]
  - Mydriasis [Unknown]
  - Areflexia [Unknown]
  - Pupillary reflex impaired [Unknown]
  - Mechanical ventilation complication [Unknown]
  - Defect conduction intraventricular [Recovered/Resolved]
  - Mental status changes [Recovered/Resolved]
  - Cardiac dysfunction [Recovered/Resolved]
